FAERS Safety Report 14152710 (Version 1)
Quarter: 2017Q4

REPORT INFORMATION
  Report Type: Report from Study
  Country: JP (occurrence: JP)
  Receive Date: 20171102
  Receipt Date: 20171102
  Transmission Date: 20180321
  Serious: Yes (Hospitalization)
  Sender: FDA-Public Use
  Company Number: PHHO2014JP014404

PATIENT
  Age: 65 Year
  Sex: Male
  Weight: 104 kg

DRUGS (18)
  1. EQUA [Concomitant]
     Active Substance: VILDAGLIPTIN
     Indication: DIABETES MELLITUS
     Dosage: 100 MG, UNK
     Route: 048
  2. BAYASPIRIN [Concomitant]
     Active Substance: ASPIRIN
     Indication: THROMBOSIS PROPHYLAXIS
     Dosage: 100 MG, UNK
     Route: 048
  3. MAGMITT [Concomitant]
     Active Substance: MAGNESIUM OXIDE
     Indication: CONSTIPATION PROPHYLAXIS
     Dosage: 1000 MG, UNK
     Route: 048
  4. ILARIS [Suspect]
     Active Substance: CANAKINUMAB
     Dosage: 300 MG, QUARTERLY
     Route: 058
     Dates: start: 20120726
  5. NICORANDIL [Concomitant]
     Active Substance: NICORANDIL
     Indication: ANGINA PECTORIS
     Dosage: 10 MG, UNK
     Route: 048
  6. PL [Concomitant]
     Active Substance: ACETAMINOPHEN\CAFFEINE\PROMETHAZINE\SALICYLAMIDE
     Indication: VIRAL UPPER RESPIRATORY TRACT INFECTION
     Dosage: 3 G, UNK
     Route: 048
     Dates: start: 20141022, end: 20141024
  7. MUCODYNE [Concomitant]
     Active Substance: CARBOCYSTEINE
     Indication: VIRAL UPPER RESPIRATORY TRACT INFECTION
     Dosage: 1500 MG, UNK
     Route: 048
     Dates: start: 20141022, end: 20141024
  8. PLAVIX [Concomitant]
     Active Substance: CLOPIDOGREL BISULFATE
     Indication: THROMBOSIS PROPHYLAXIS
     Dosage: 75 MG, UNK
     Route: 048
  9. CRESTOR [Concomitant]
     Active Substance: ROSUVASTATIN CALCIUM
     Indication: DYSLIPIDAEMIA
     Dosage: 2.5 MG, UNK
     Route: 048
  10. THYRADIN S [Concomitant]
     Active Substance: LEVOTHYROXINE SODIUM
     Indication: PROPHYLAXIS
     Dosage: 125 UG, UNK
     Route: 048
  11. NEXIUM [Concomitant]
     Active Substance: ESOMEPRAZOLE MAGNESIUM
     Indication: GASTRITIS PROPHYLAXIS
     Dosage: 20 MG, UNK
     Route: 048
  12. NITOROL R [Concomitant]
     Active Substance: ISOSORBIDE DINITRATE
     Indication: ANGINA PECTORIS
     Dosage: 40 MG, UNK
     Route: 048
  13. MEIACT [Concomitant]
     Active Substance: CEFDITOREN PIVOXIL
     Indication: VIRAL UPPER RESPIRATORY TRACT INFECTION
     Dosage: 300 MG, UNK
     Route: 048
     Dates: start: 20141022, end: 20141024
  14. ILARIS [Suspect]
     Active Substance: CANAKINUMAB
     Indication: CARDIOVASCULAR EVENT PROPHYLAXIS
     Dosage: 300 MG, QUARTERLY
     Route: 058
     Dates: start: 20120726
  15. METGLUCO [Concomitant]
     Active Substance: METFORMIN HYDROCHLORIDE
     Indication: DIABETES MELLITUS
     Dosage: 1000 MG, UNK
     Route: 048
  16. OLMETEC [Concomitant]
     Active Substance: OLMESARTAN MEDOXOMIL
     Indication: HYPERTENSION
     Dosage: 20 MG, UNK
     Route: 048
  17. URINORM [Concomitant]
     Active Substance: BENZBROMARONE
     Indication: GOUT
     Dosage: 25 MG, UNK
     Route: 048
  18. URSO [Concomitant]
     Active Substance: URSODIOL
     Indication: HEPATIC FUNCTION ABNORMAL
     Dosage: 400 MG, UNK
     Route: 048

REACTIONS (1)
  - Urinary tract infection [Recovered/Resolved]

NARRATIVE: CASE EVENT DATE: 20141022
